FAERS Safety Report 6773573-1 (Version None)
Quarter: 2010Q2

REPORT INFORMATION
  Report Type: 
  Country: None (occurrence: None)
  Receive Date: 20100611
  Receipt Date: 20100604
  Transmission Date: 20101027
  Serious: Yes (Hospitalization)
  Sender: FDA-Public Use
  Company Number: 2010SP031393

PATIENT
  Age: 41 Year
  Sex: Female
  Weight: 72.5755 kg

DRUGS (3)
  1. NUVARING [Suspect]
     Indication: CONTRACEPTION
     Dates: start: 20070101, end: 20070101
  2. LEVOTHYROXINE SODIUM [Concomitant]
  3. TYLENOL [Concomitant]

REACTIONS (2)
  - DEEP VEIN THROMBOSIS [None]
  - HYPERCOAGULATION [None]
